FAERS Safety Report 18879960 (Version 1)
Quarter: 2021Q1

REPORT INFORMATION
  Report Type: Spontaneous
  Country: JP (occurrence: JP)
  Receive Date: 20210211
  Receipt Date: 20210211
  Transmission Date: 20210420
  Serious: Yes (Other)
  Sender: FDA-Public Use
  Company Number: JP-PFIZER INC-2021097066

PATIENT
  Age: 60 Year
  Sex: Female

DRUGS (1)
  1. EFFEXOR [Suspect]
     Active Substance: VENLAFAXINE HYDROCHLORIDE
     Indication: DEPRESSION
     Dosage: UNK
     Route: 048

REACTIONS (18)
  - General physical health deterioration [Recovering/Resolving]
  - Cold sweat [Unknown]
  - Musculoskeletal stiffness [Unknown]
  - Tension [Unknown]
  - Oropharyngeal discomfort [Unknown]
  - Visual impairment [Unknown]
  - Bipolar I disorder [Unknown]
  - Mania [Unknown]
  - Dysphagia [Unknown]
  - Muscle contractions involuntary [Unknown]
  - Dizziness [Recovering/Resolving]
  - Myalgia [Unknown]
  - Auditory disorder [Unknown]
  - Cough [Unknown]
  - Sensory disturbance [Unknown]
  - Muscle tightness [Unknown]
  - Hypersensitivity [Unknown]
  - Tremor [Unknown]
